FAERS Safety Report 22284199 (Version 1)
Quarter: 2023Q2

REPORT INFORMATION
  Report Type: Spontaneous
  Country: US (occurrence: US)
  Receive Date: 20230504
  Receipt Date: 20230504
  Transmission Date: 20230722
  Serious: Yes (Other)
  Sender: FDA-Public Use
  Company Number: US-drreddys-SPO/USA/23/0164419

PATIENT
  Age: 19 Year
  Sex: Female

DRUGS (2)
  1. ISOTRETINOIN [Suspect]
     Active Substance: ISOTRETINOIN
     Indication: Product used for unknown indication
     Dosage: 1ST COURSE: 40-60 MG/DAY X 6 MONTHS
  2. ISOTRETINOIN [Suspect]
     Active Substance: ISOTRETINOIN
     Dosage: 2ND COURSE: 80-150 MG/DAY X 7 MONTHS

REACTIONS (2)
  - Psychiatric symptom [Unknown]
  - Skin disorder [Unknown]
